FAERS Safety Report 25438737 (Version 2)
Quarter: 2025Q3

REPORT INFORMATION
  Report Type: Spontaneous
  Country: US (occurrence: US)
  Receive Date: 20250616
  Receipt Date: 20250701
  Transmission Date: 20251020
  Serious: No
  Sender: Haleon PLC
  Company Number: US-HALEON-2246905

PATIENT

DRUGS (1)
  1. ADVIL [Suspect]
     Active Substance: IBUPROFEN
     Indication: Pain

REACTIONS (2)
  - Drug effect less than expected [Unknown]
  - Product physical issue [Unknown]
